FAERS Safety Report 12468697 (Version 1)
Quarter: 2016Q2

REPORT INFORMATION
  Report Type: Spontaneous
  Country: JP (occurrence: JP)
  Receive Date: 20160615
  Receipt Date: 20160615
  Transmission Date: 20160815
  Serious: Yes (Death, Other)
  Sender: FDA-Public Use
  Company Number: PHJP1900JP002271

PATIENT
  Age: 50 Year
  Sex: Male
  Weight: 85 kg

DRUGS (13)
  1. SANDIMMUN [Suspect]
     Active Substance: CYCLOSPORINE
     Indication: BONE MARROW TRANSPLANT
     Dosage: 700 MG, QD
     Dates: start: 19950428, end: 19950504
  2. NEUTROGIN [Concomitant]
     Active Substance: LENOGRASTIM
     Indication: WHITE BLOOD CELL COUNT DECREASED
     Route: 041
     Dates: start: 19950505, end: 19950526
  3. METHOTREXATE [Concomitant]
     Active Substance: METHOTREXATE
     Dosage: 12 MG, QD
     Dates: start: 19950509, end: 19950509
  4. LIPLE [Concomitant]
     Active Substance: ALPROSTADIL
     Indication: RENAL DISORDER
     Dosage: 5 UNK, QD
     Route: 041
     Dates: start: 19950519, end: 19950525
  5. AZACTAM [Concomitant]
     Active Substance: AZTREONAM
     Indication: INFECTION
     Dosage: 4 G, QD
     Route: 041
     Dates: start: 19950518, end: 19950525
  6. DIFLUCAN [Concomitant]
     Active Substance: FLUCONAZOLE
     Indication: INFECTION
     Dosage: 200 MG, QD
     Route: 041
     Dates: start: 19950518, end: 19950526
  7. METHOTREXATE [Concomitant]
     Active Substance: METHOTREXATE
     Dosage: 18 MG, QD
     Dates: start: 19950501, end: 19950504
  8. SANDIMMUN [Suspect]
     Active Substance: CYCLOSPORINE
     Dosage: 280 MG, QD
     Dates: start: 19950517, end: 19950518
  9. SANDIMMUN [Suspect]
     Active Substance: CYCLOSPORINE
     Dosage: 250 MG, QD
     Route: 048
     Dates: start: 19950519, end: 19950522
  10. METHOTREXATE [Concomitant]
     Active Substance: METHOTREXATE
     Indication: PRODUCT USED FOR UNKNOWN INDICATION
     Dosage: 27 MG, QD
     Route: 041
     Dates: start: 19950429, end: 19950429
  11. SANDIMMUN [Suspect]
     Active Substance: CYCLOSPORINE
     Indication: PROPHYLAXIS AGAINST TRANSPLANT REJECTION
     Dosage: 420 MG, QD
     Dates: start: 19950505, end: 19950516
  12. ZOVIRAX [Suspect]
     Active Substance: ACYCLOVIR
     Indication: HERPES VIRUS INFECTION
     Dosage: 750 MG, QD
     Route: 041
     Dates: start: 19950512, end: 19950520
  13. CARBENIN [Suspect]
     Active Substance: BETAMIPRON\PANIPENEM
     Indication: INFECTION
     Dosage: 2 G, QD
     Route: 041
     Dates: start: 19950518, end: 19950524

REACTIONS (2)
  - Altered state of consciousness [Fatal]
  - Renal failure [Fatal]
